FAERS Safety Report 7293964-2 (Version None)
Quarter: 2011Q1

REPORT INFORMATION
  Report Type: 
  Country: None (occurrence: None)
  Receive Date: 20110203
  Receipt Date: 20110120
  Transmission Date: 20110831
  Serious: Yes (Hospitalization)
  Sender: FDA-Public Use
  Company Number: 021117

PATIENT
  Sex: Female

DRUGS (4)
  1. LANSOX [Concomitant]
  2. METFORMIN HYDROCHLORIDE [Concomitant]
  3. METHYLPREDNISOLONE [Concomitant]
  4. KEPPRA [Suspect]
     Indication: EPILEPSY
     Dosage: 1500 MG, 500 MG 60 FILM COATED TABLETS ORAL
     Route: 048
     Dates: start: 20090630, end: 20100521

REACTIONS (3)
  - LEUKOPENIA [None]
  - PYREXIA [None]
  - NEUTROPENIA [None]
